FAERS Safety Report 8107609-2 (Version None)
Quarter: 2012Q1

REPORT INFORMATION
  Report Type: 
  Country: None (occurrence: None)
  Receive Date: 20120202
  Receipt Date: 20120130
  Transmission Date: 20120608
  Serious: No
  Sender: FDA-Public Use
  Company Number: US-PFIZER INC-2007035191

PATIENT
  Sex: Female
  Weight: 86.168 kg

DRUGS (12)
  1. CHANTIX [Suspect]
     Indication: SMOKING CESSATION THERAPY
     Route: 048
     Dates: start: 20080103
  2. DIAZEPAM [Concomitant]
  3. ACETYLSALICYLIC ACID SRT [Concomitant]
  4. NEXIUM [Concomitant]
  5. OXYGEN [Concomitant]
  6. PREVACID [Concomitant]
  7. THEOPHYLLINE [Concomitant]
  8. METOPROLOL TARTRATE [Concomitant]
  9. ISOSORBIDE DINITRATE [Concomitant]
  10. CHANTIX [Suspect]
     Dosage: UNK
     Route: 048
  11. SPIRIVA [Concomitant]
  12. HYDROCHLOROTHIAZIDE [Concomitant]

REACTIONS (8)
  - BREAST ENLARGEMENT [None]
  - NAUSEA [None]
  - DECREASED APPETITE [None]
  - NIPPLE PAIN [None]
  - BREAST DISCHARGE [None]
  - ABNORMAL DREAMS [None]
  - MALAISE [None]
  - WEIGHT DECREASED [None]
